FAERS Safety Report 8508244-4 (Version None)
Quarter: 2012Q3

REPORT INFORMATION
  Report Type: 
  Country: None (occurrence: None)
  Receive Date: 20120713
  Receipt Date: 20120704
  Transmission Date: 20120928
  Serious: Yes (Hospitalization)
  Sender: FDA-Public Use
  Company Number: US-BRISTOL-MYERS SQUIBB COMPANY-16742942

PATIENT
  Age: 61 Year
  Sex: Female
  Weight: 59 kg

DRUGS (2)
  1. IPILIMUMAB [Suspect]
     Indication: MALIGNANT MELANOMA
     Dosage: LAST DOSE ON 29JUN11,NO OF COURSES: 6
     Route: 042
     Dates: start: 20110427, end: 20110629
  2. LEUKINE [Suspect]
     Indication: MALIGNANT MELANOMA
     Dosage: LAST DOSE ON 10JUL11,NO OF COURSES: 6
     Route: 042
     Dates: start: 20110427, end: 20110710

REACTIONS (4)
  - NAUSEA [None]
  - COLITIS [None]
  - DIARRHOEA [None]
  - ABDOMINAL PAIN [None]
